FAERS Safety Report 24173181 (Version 1)
Quarter: 2024Q3

REPORT INFORMATION
  Report Type: Spontaneous
  Country: IR (occurrence: IR)
  Receive Date: 20240805
  Receipt Date: 20240805
  Transmission Date: 20241017
  Serious: Yes (Other)
  Sender: MYLAN
  Company Number: IR-MYLANLABS-2024M1072200

PATIENT
  Age: 40 Year
  Sex: Female

DRUGS (3)
  1. METHOTREXATE [Suspect]
     Active Substance: METHOTREXATE
     Indication: Plasma cell mastitis
     Dosage: UNK
     Route: 065
  2. COLCHICINE [Suspect]
     Active Substance: COLCHICINE
     Indication: Plasma cell mastitis
     Dosage: UNK
     Route: 065
  3. IMIQUIMOD [Concomitant]
     Active Substance: IMIQUIMOD
     Indication: Plasma cell mastitis
     Dosage: UNK
     Route: 061

REACTIONS (2)
  - Drug ineffective for unapproved indication [Unknown]
  - Off label use [Unknown]
